FAERS Safety Report 15237928 (Version 1)
Quarter: 2018Q3

REPORT INFORMATION
  Report Type: Spontaneous
  Country: US (occurrence: US)
  Receive Date: 20180710
  Receipt Date: 20180710
  Transmission Date: 20181010
  Serious: Yes (Disabling, Other)
  Sender: FDA-Public Use
  Company Number: None

PATIENT
  Age: 60 Year
  Sex: Female
  Weight: 121.5 kg

DRUGS (14)
  1. FLUTICASONE PROPIONATE 50 MCG 120 METORED [Suspect]
     Active Substance: FLUTICASONE PROPIONATE
     Indication: HYPERSENSITIVITY
     Dosage: ?          OTHER STRENGTH:120 METORED;QUANTITY:1 SPRAY(S);?
     Route: 055
  2. AZELASTINE. [Concomitant]
     Active Substance: AZELASTINE HYDROCHLORIDE
  3. VITAMIN D [Concomitant]
     Active Substance: CHOLECALCIFEROL
  4. AMLODIPINE [Concomitant]
     Active Substance: AMLODIPINE BESYLATE
  5. LEVECTIRIZINE [Concomitant]
  6. MONTELKAST [Concomitant]
  7. FARXIGA [Concomitant]
     Active Substance: DAPAGLIFLOZIN PROPANEDIOL
  8. PRO AIR INHALER [Concomitant]
  9. MELOXICAM. [Concomitant]
     Active Substance: MELOXICAM
  10. PHSUEDAFEDRINE [Concomitant]
  11. ZOLPIDEM [Concomitant]
     Active Substance: ZOLPIDEM\ZOLPIDEM TARTRATE
  12. FLUTICASONE PROPIONATE 50 MCG 120 METORED [Suspect]
     Active Substance: FLUTICASONE PROPIONATE
     Indication: SINUSITIS
     Dosage: ?          OTHER STRENGTH:120 METORED;QUANTITY:1 SPRAY(S);?
     Route: 055
  13. METFORMIN [Concomitant]
     Active Substance: METFORMIN HYDROCHLORIDE
  14. CPAP MACHINE [Concomitant]

REACTIONS (7)
  - Epistaxis [None]
  - Swelling [None]
  - Sinusitis [None]
  - Migraine [None]
  - Tooth extraction [None]
  - Anosmia [None]
  - Nasal congestion [None]

NARRATIVE: CASE EVENT DATE: 20171115
